FAERS Safety Report 6345925-5 (Version None)
Quarter: 2009Q3

REPORT INFORMATION
  Report Type: 
  Country: None (occurrence: None)
  Receive Date: 20090909
  Receipt Date: 20090902
  Transmission Date: 20100115
  Serious: Yes (Death, Hospitalization)
  Sender: FDA-Public Use
  Company Number: B0586189A

PATIENT
  Sex: Female
  Weight: 62 kg

DRUGS (19)
  1. TYKERB [Suspect]
     Indication: BREAST CANCER RECURRENT
     Dosage: 1250MG PER DAY
     Route: 048
     Dates: start: 20090709, end: 20090721
  2. XELODA [Suspect]
     Indication: BREAST CANCER RECURRENT
     Dosage: 3000MG PER DAY
     Route: 048
     Dates: start: 20090709, end: 20090721
  3. PYDOXAL [Suspect]
     Dosage: 30MG PER DAY
     Route: 048
     Dates: start: 20090709, end: 20090721
  4. CYCLOPHOSPHAMIDE [Concomitant]
     Indication: CHEMOTHERAPY
     Dates: start: 20030209, end: 20040209
  5. METHOTREXATE [Concomitant]
     Indication: CHEMOTHERAPY
     Dates: start: 20030209, end: 20040209
  6. FLUOROURACIL [Concomitant]
     Indication: CHEMOTHERAPY
     Dates: start: 20030209, end: 20040209
  7. PACLITAXEL [Concomitant]
     Indication: CHEMOTHERAPY
     Dates: start: 20050307, end: 20050817
  8. CAPECITABINE [Concomitant]
     Indication: CHEMOTHERAPY
     Dates: start: 20050907
  9. PACLITAXEL [Concomitant]
     Dates: start: 20050925, end: 20070401
  10. TRASTUZUMAB [Concomitant]
     Indication: CHEMOTHERAPY
     Dates: start: 20050925, end: 20070401
  11. DOCETAXEL [Concomitant]
     Indication: CHEMOTHERAPY
     Dates: start: 20070401, end: 20070701
  12. TRASTUZUMAB [Concomitant]
     Dates: start: 20070401, end: 20070701
  13. FLUOROURACIL [Concomitant]
     Dates: start: 20070701, end: 20080501
  14. TRASTUZUMAB [Concomitant]
     Dates: start: 20070701, end: 20080501
  15. EPIRUBICIN [Concomitant]
     Indication: CHEMOTHERAPY
     Dates: start: 20080501
  16. CYCLOPHOSPHAMIDE [Concomitant]
     Dates: start: 20080501
  17. FLUOROURACIL [Concomitant]
     Dates: start: 20080501
  18. TAMOXIFEN CITRATE [Concomitant]
     Indication: CHEMOTHERAPY
     Dates: start: 20030804, end: 20060720
  19. EXEMESTANE [Concomitant]
     Dates: start: 20060810, end: 20090101

REACTIONS (5)
  - BLOOD PRESSURE DECREASED [None]
  - CACHEXIA [None]
  - DYSPNOEA [None]
  - HEPATIC FUNCTION ABNORMAL [None]
  - PYREXIA [None]
